FAERS Safety Report 24935326 (Version 2)
Quarter: 2025Q1

REPORT INFORMATION
  Report Type: Report from Study
  Country: FR (occurrence: FR)
  Receive Date: 20250206
  Receipt Date: 20250320
  Transmission Date: 20250408
  Serious: Yes (Other)
  Sender: GILEAD
  Company Number: FR-GILEAD-2025-0702319

PATIENT
  Age: 60 Year
  Sex: Male

DRUGS (1)
  1. COBICISTAT\ELVITEGRAVIR\EMTRICITABINE\TENOFOVIR [Suspect]
     Active Substance: COBICISTAT\ELVITEGRAVIR\EMTRICITABINE\TENOFOVIR
     Indication: HIV infection
     Route: 065

REACTIONS (4)
  - Syncope [Unknown]
  - Palpitations [Unknown]
  - Discomfort [Unknown]
  - Drug interaction [Unknown]
